FAERS Safety Report 23139387 (Version 1)
Quarter: 2023Q4

REPORT INFORMATION
  Report Type: Spontaneous
  Country: GB (occurrence: GB)
  Receive Date: 20231102
  Receipt Date: 20231102
  Transmission Date: 20240110
  Serious: Yes (Other)
  Sender: FDA-Public Use
  Company Number: GB-AUROBINDO-AUR-APL-2023-044497

PATIENT
  Age: 79 Year
  Sex: Female

DRUGS (6)
  1. DONEPEZIL [Suspect]
     Active Substance: DONEPEZIL
     Indication: Memory impairment
     Dosage: 10 MILLIGRAM, ONCE A DAY
     Route: 048
     Dates: start: 202305
  2. DONEPEZIL [Suspect]
     Active Substance: DONEPEZIL
     Dosage: 10 MILLIGRAM, ONCE A DAY
     Route: 048
     Dates: start: 20230112, end: 20230330
  3. DONEPEZIL [Suspect]
     Active Substance: DONEPEZIL
     Dosage: 5 MILLIGRAM, ONCE A DAY,(REPORTED AS 10 TO 11 WEEKS AGO FROM THE TIME OF THIS REPORT)
     Route: 048
     Dates: start: 202304
  4. DONEPEZIL [Suspect]
     Active Substance: DONEPEZIL
     Dosage: 5 MILLIGRAM, ONCE A DAY,(REPORTED AS 10 TO 11 WEEKS AGO FROM THE TIME OF THIS REPORT)
     Route: 048
     Dates: start: 20221220, end: 20230111
  5. MEMANTINE [Concomitant]
     Active Substance: MEMANTINE
     Indication: Memory impairment
     Dosage: UNK, REPORTED AS RESTARTED 7 DAYS AGO)
     Route: 048
     Dates: start: 202306
  6. MEMANTINE [Concomitant]
     Active Substance: MEMANTINE
     Dosage: UNK
     Route: 048

REACTIONS (6)
  - Hallucination, auditory [Unknown]
  - Tardive dyskinesia [Not Recovered/Not Resolved]
  - Nightmare [Recovered/Resolved]
  - Dyskinesia [Recovered/Resolved]
  - Facial spasm [Not Recovered/Not Resolved]
  - Therapy change [Unknown]

NARRATIVE: CASE EVENT DATE: 20230201
